FAERS Safety Report 6958259-2 (Version None)
Quarter: 2010Q3

REPORT INFORMATION
  Report Type: 
  Country: None (occurrence: None)
  Receive Date: 20100827
  Receipt Date: 20100827
  Transmission Date: 20110219
  Serious: Yes (Life-Threatening, Disabling)
  Sender: FDA-Public Use
  Company Number: None

PATIENT
  Age: 81 Year
  Sex: Female
  Weight: 81.6475 kg

DRUGS (1)
  1. AMIODARONE HCL [Suspect]
     Indication: HEART RATE INCREASED
     Dosage: 1 TAB. A DAY
     Dates: start: 20090101, end: 20100101

REACTIONS (2)
  - DRUG TOXICITY [None]
  - OXYGEN SUPPLEMENTATION [None]
